FAERS Safety Report 25916177 (Version 2)
Quarter: 2025Q4

REPORT INFORMATION
  Report Type: Spontaneous
  Country: GB (occurrence: GB)
  Receive Date: 20251014
  Receipt Date: 20251014
  Transmission Date: 20260118
  Serious: Yes (Life-Threatening, Other)
  Sender: ACCORD
  Company Number: None

PATIENT
  Age: 44 Year
  Sex: Male
  Weight: 77 kg

DRUGS (6)
  1. ALLOPURINOL [Suspect]
     Active Substance: ALLOPURINOL
     Indication: Gout
     Dosage: ONE TABLET EACH DAY WITH FOOD FOR 4 WEEKS
     Dates: start: 20250508, end: 20250609
  2. NAPROXEN [Concomitant]
     Active Substance: NAPROXEN
     Indication: Gout
     Dosage: ONE TO BE TAKEN THREE TIMES A DAY
     Dates: start: 20250410, end: 20250509
  3. OMEPRAZOLE [Concomitant]
     Active Substance: OMEPRAZOLE
     Indication: Gout
     Dosage: ONE TO BE TAKEN EACH DAY
     Dates: start: 20250410, end: 20250523
  4. COLCHICINE [Concomitant]
     Active Substance: COLCHICINE
     Indication: Gout
     Dosage: ONE TO BE TAKEN TWO TO FOUR
     Dates: start: 20250508
  5. PENICILLIN V [Concomitant]
     Active Substance: PENICILLIN V
     Dosage: TAKE TWO TABLETS FOUR TIMES A DAY
     Dates: start: 20250528
  6. EMOLLIN [Concomitant]
     Dosage: WHEN REQUIRED - EVERY 2 HOURS, AEROSOL SPRAY (C D MEDICAL LTD)
     Dates: start: 20250609

REACTIONS (2)
  - Stevens-Johnson syndrome [Unknown]
  - Anaphylactic reaction [Unknown]

NARRATIVE: CASE EVENT DATE: 20250602
